FAERS Safety Report 9237605 (Version 1)
Quarter: 2013Q2

REPORT INFORMATION
  Report Type: Spontaneous
  Country: FR (occurrence: FR)
  Receive Date: 20130418
  Receipt Date: 20130418
  Transmission Date: 20140414
  Serious: Yes (Hospitalization, Other)
  Sender: FDA-Public Use
  Company Number: FR-PFIZER INC-2013115524

PATIENT
  Age: 31 Year
  Sex: Female
  Weight: 100 kg

DRUGS (4)
  1. CHAMPIX [Suspect]
     Dosage: 2 MG, 1X/DAY
     Route: 048
     Dates: start: 20120103, end: 20120214
  2. NORSET [Suspect]
     Indication: INSOMNIA
     Dosage: 15 MG, 1X/DAY
     Route: 048
     Dates: start: 20120115, end: 20120214
  3. MUCOMYST [Suspect]
     Dosage: 2.4 G, 1X/DAY
     Route: 048
     Dates: start: 20120201, end: 20120214
  4. CERAZETTE [Concomitant]
     Indication: CONTRACEPTION
     Dosage: UNK

REACTIONS (9)
  - Psoriasis [Not Recovered/Not Resolved]
  - Eyelid disorder [Unknown]
  - Gait disturbance [Unknown]
  - Hepatomegaly [Unknown]
  - Face oedema [Unknown]
  - Headache [Unknown]
  - Oedema peripheral [Unknown]
  - Discomfort [Unknown]
  - Social problem [Unknown]
